FAERS Safety Report 9287404 (Version 1)
Quarter: 2013Q2

REPORT INFORMATION
  Report Type: Report from Study
  Country: ID (occurrence: ID)
  Receive Date: 20130514
  Receipt Date: 20130514
  Transmission Date: 20140414
  Serious: Yes (Death, Hospitalization)
  Sender: FDA-Public Use
  Company Number: ID-ROCHE-1222534

PATIENT
  Age: 62 Year
  Sex: Female

DRUGS (1)
  1. BONVIVA [Suspect]
     Indication: OSTEOPOROSIS
     Route: 048
     Dates: start: 20130126, end: 201303

REACTIONS (3)
  - Haematological malignancy [Fatal]
  - Fatigue [Unknown]
  - Haemoglobin decreased [Unknown]
